FAERS Safety Report 4554769-6 (Version None)
Quarter: 2004Q4

REPORT INFORMATION
  Report Type: 
  Country: None (occurrence: None)
  Receive Date: 20041227
  Receipt Date: 20040818
  Transmission Date: 20050328
  Serious: No
  Sender: FDA-Public Use
  Company Number: 2004-0007380

PATIENT
  Age: 29 Year
  Sex: Female
  Weight: 60.782 kg

DRUGS (5)
  1. VIREAD [Suspect]
     Indication: HIV INFECTION
     Dosage: 300 MG, ORAL
     Route: 048
     Dates: start: 20030701
  2. VIDEX [Concomitant]
  3. KALETRA [Concomitant]
  4. EPIVIR [Concomitant]
  5. LEXAPRO [Concomitant]

REACTIONS (1)
  - NEPHROLITHIASIS [None]
